FAERS Safety Report 12988346 (Version 1)
Quarter: 2016Q4

REPORT INFORMATION
  Report Type: Spontaneous
  Country: US (occurrence: US)
  Receive Date: 20161130
  Receipt Date: 20161130
  Transmission Date: 20170207
  Serious: Yes (Other)
  Sender: FDA-Public Use
  Company Number: PHEH2016US030941

PATIENT
  Age: 77 Year
  Sex: Female

DRUGS (13)
  1. ZOMETA [Suspect]
     Active Substance: ZOLEDRONIC ACID
     Dosage: UNK
     Route: 042
     Dates: start: 20140319
  2. INLYTA [Suspect]
     Active Substance: AXITINIB
     Indication: RENAL CELL CARCINOMA STAGE IV
     Dosage: 3 MG, BID
     Route: 048
  3. NYSTATIN. [Concomitant]
     Active Substance: NYSTATIN
     Indication: PRODUCT USED FOR UNKNOWN INDICATION
     Dosage: 30 G, TID
     Route: 061
  4. VITAMIN D3 [Concomitant]
     Active Substance: CHOLECALCIFEROL
     Indication: PRODUCT USED FOR UNKNOWN INDICATION
     Dosage: 2000 MG, QD
     Route: 048
  5. LEVOTHYROXINE. [Concomitant]
     Active Substance: LEVOTHYROXINE
     Indication: PRODUCT USED FOR UNKNOWN INDICATION
     Dosage: 0.075 MG, QD
     Route: 048
  6. ZOMETA [Suspect]
     Active Substance: ZOLEDRONIC ACID
     Indication: RENAL CELL CARCINOMA
     Dosage: 3 MG/ 3.75 ML QD
     Route: 042
     Dates: start: 20131009
  7. ZOMETA [Suspect]
     Active Substance: ZOLEDRONIC ACID
     Dosage: UNK
     Route: 042
     Dates: start: 20140707
  8. OXYCODONE AND ACETAMINOPHEN [Concomitant]
     Active Substance: ACETAMINOPHEN\OXYCODONE HYDROCHLORIDE
     Indication: PAIN
     Dosage: 7.5/ 325 MG, QD
     Route: 048
  9. ZOMETA [Suspect]
     Active Substance: ZOLEDRONIC ACID
     Dosage: UNK
     Route: 042
     Dates: start: 20140109
  10. VERAPAMIL [Concomitant]
     Active Substance: VERAPAMIL HYDROCHLORIDE
     Indication: PRODUCT USED FOR UNKNOWN INDICATION
     Dosage: 240 MG, QD
     Route: 048
  11. BEELITH [Concomitant]
     Indication: PRODUCT USED FOR UNKNOWN INDICATION
     Dosage: 1 TABLET
     Route: 048
  12. LASIX [Concomitant]
     Active Substance: FUROSEMIDE
     Indication: OEDEMA
     Dosage: 20 MG, QD
     Route: 048
  13. DIFLUCAN [Concomitant]
     Active Substance: FLUCONAZOLE
     Indication: VAGINAL INFECTION
     Dosage: 100 MG, QD
     Route: 048

REACTIONS (16)
  - Second primary malignancy [Unknown]
  - Decreased appetite [Unknown]
  - Arthralgia [Unknown]
  - Blood chloride decreased [Unknown]
  - Blood sodium decreased [Unknown]
  - Product use issue [Unknown]
  - Postmenopausal haemorrhage [Unknown]
  - Glomerular filtration rate decreased [Unknown]
  - Lipase decreased [Unknown]
  - Malignant neoplasm progression [Unknown]
  - Gastrooesophageal reflux disease [Unknown]
  - Musculoskeletal pain [Unknown]
  - Fatigue [Unknown]
  - Endometrial adenocarcinoma [Unknown]
  - Abdominal pain upper [Unknown]
  - Pain [Unknown]

NARRATIVE: CASE EVENT DATE: 20131009
